FAERS Safety Report 21573697 (Version 1)
Quarter: 2022Q4

REPORT INFORMATION
  Report Type: Spontaneous
  Country: EG (occurrence: EG)
  Receive Date: 20221109
  Receipt Date: 20221109
  Transmission Date: 20230112
  Serious: Yes (Other)
  Sender: FDA-Public Use
  Company Number: EG-BoehringerIngelheim-2022-BI-200432

PATIENT
  Age: 43 Year
  Sex: Female
  Weight: 104 kg

DRUGS (5)
  1. ATROVENT [Suspect]
     Active Substance: IPRATROPIUM BROMIDE
     Indication: Product used for unknown indication
  2. Ventolin tab [Concomitant]
     Indication: Product used for unknown indication
  3. Ventolin inhaler aerosol [Concomitant]
     Indication: Product used for unknown indication
  4. Mucosol tablets [Concomitant]
     Indication: Product used for unknown indication
  5. farcolin [Concomitant]
     Indication: Product used for unknown indication

REACTIONS (2)
  - Maternal exposure during pregnancy [Unknown]
  - Anaphylactic reaction [Recovered/Resolved]
